FAERS Safety Report 11193702 (Version 1)
Quarter: 2015Q2

REPORT INFORMATION
  Report Type: Spontaneous
  Country: US (occurrence: US)
  Receive Date: 20150616
  Receipt Date: 20150616
  Transmission Date: 20150821
  Serious: Yes (Other)
  Sender: FDA-Public Use
  Company Number: US-TAKEDA-2014MPI001898

PATIENT
  Age: 80 Year
  Sex: Female
  Weight: 65.76 kg

DRUGS (6)
  1. DEXAMETHASONE. [Suspect]
     Active Substance: DEXAMETHASONE
     Dosage: 8 MG, QD,ON DAYS 1-4 OF EACH CYCLE
     Route: 048
  2. DEXAMETHASONE. [Suspect]
     Active Substance: DEXAMETHASONE
     Indication: PLASMA CELL MYELOMA
     Dosage: 40 MG, QD, ON DAYS 1-4 OF EACH TREATMENT CYCLE
     Route: 048
     Dates: start: 20140502
  3. NORCO [Concomitant]
     Active Substance: ACETAMINOPHEN\HYDROCODONE BITARTRATE
     Indication: PAIN
  4. DEXAMETHASONE. [Suspect]
     Active Substance: DEXAMETHASONE
     Dosage: 4 MG, QD, ON DAYS 1-4
     Route: 048
  5. DEXAMETHASONE. [Suspect]
     Active Substance: DEXAMETHASONE
     Dosage: 20 MG, DAYS 1-4 OF EACH CYCLE
     Route: 048
  6. VELCADE [Suspect]
     Active Substance: BORTEZOMIB
     Indication: PLASMA CELL MYELOMA
     Dosage: UNK UNK, 2/WEEK FOR 2 WEEKS FOLLOWED BY 10 DAY REST
     Route: 058
     Dates: start: 20140502

REACTIONS (5)
  - Dehydration [Recovered/Resolved]
  - Deafness [Unknown]
  - Neuropathy peripheral [Not Recovered/Not Resolved]
  - Joint swelling [Recovered/Resolved]
  - Asthenia [Recovering/Resolving]
